FAERS Safety Report 25116978 (Version 1)
Quarter: 2025Q1

REPORT INFORMATION
  Report Type: Spontaneous
  Country: DK (occurrence: DK)
  Receive Date: 20250325
  Receipt Date: 20250325
  Transmission Date: 20250409
  Serious: Yes (Life-Threatening, Hospitalization, Disabling, Other)
  Sender: ROCHE
  Company Number: None

PATIENT
  Age: 55 Year
  Sex: Male
  Weight: 79 kg

DRUGS (1)
  1. TECENTRIQ [Suspect]
     Active Substance: ATEZOLIZUMAB
     Indication: Prostate cancer
     Route: 042
     Dates: start: 20240816

REACTIONS (10)
  - Dyspnoea [Unknown]
  - Fatigue [Unknown]
  - Vomiting [Unknown]
  - Dizziness [Unknown]
  - Ketoacidosis [Unknown]
  - Decreased appetite [Unknown]
  - Cough [Unknown]
  - Balance disorder [Unknown]
  - Type 1 diabetes mellitus [Not Recovered/Not Resolved]
  - Hyperthyroidism [Unknown]

NARRATIVE: CASE EVENT DATE: 20240901
